FAERS Safety Report 7422707-4 (Version None)
Quarter: 2011Q2

REPORT INFORMATION
  Report Type: 
  Country: None (occurrence: None)
  Receive Date: 20110414
  Receipt Date: 20110414
  Transmission Date: 20111010
  Serious: No
  Sender: FDA-Public Use
  Company Number: None

PATIENT
  Age: 78 Year
  Sex: Female
  Weight: 68 kg

DRUGS (2)
  1. TRAMADOL HCL [Suspect]
     Dosage: 50 MG TID PO
     Route: 048
     Dates: start: 20101103, end: 20110107
  2. CITALOPRAM HYDROBROMIDE [Suspect]
     Dosage: 20 MG EVERY DAY PO
     Route: 048
     Dates: start: 20100615, end: 20110107

REACTIONS (3)
  - DYSPNOEA [None]
  - SEROTONIN SYNDROME [None]
  - TREMOR [None]
